FAERS Safety Report 5691160-3 (Version None)
Quarter: 2008Q2

REPORT INFORMATION
  Report Type: 
  Country: None (occurrence: None)
  Receive Date: 20080402
  Receipt Date: 20080328
  Transmission Date: 20081010
  Serious: Yes (Other)
  Sender: FDA-Public Use
  Company Number: US-SP-2008-00716

PATIENT
  Age: 16 Year
  Sex: Female

DRUGS (1)
  1. TUBERSOL [Suspect]
     Indication: TUBERCULIN TEST
     Route: 023
     Dates: start: 20080306

REACTIONS (7)
  - ABDOMINAL PAIN [None]
  - FEELING HOT [None]
  - FLUSHING [None]
  - HYPERSENSITIVITY [None]
  - MUSCLE SPASMS [None]
  - PAIN [None]
  - SENSORY LOSS [None]
